FAERS Safety Report 6269192-6 (Version None)
Quarter: 2009Q3

REPORT INFORMATION
  Report Type: 
  Country: None (occurrence: None)
  Receive Date: 20090715
  Receipt Date: 20090706
  Transmission Date: 20100115
  Serious: Yes (Hospitalization, Other)
  Sender: FDA-Public Use
  Company Number: MX-JNJFOC-20090703413

PATIENT
  Sex: Male

DRUGS (7)
  1. RISPERDAL [Suspect]
     Indication: DRUG EXPOSURE DURING PREGNANCY
  2. LEVOTHYROXINE SODIUM [Concomitant]
     Indication: DRUG EXPOSURE DURING PREGNANCY
  3. CLONAZEPAM [Concomitant]
     Indication: DRUG EXPOSURE DURING PREGNANCY
  4. VALPROIC ACID [Concomitant]
     Indication: DRUG EXPOSURE DURING PREGNANCY
  5. TOCOPHEROL CONCENTRATE CAP [Concomitant]
     Indication: DRUG EXPOSURE DURING PREGNANCY
  6. FOLIC ACID [Concomitant]
     Indication: DRUG EXPOSURE DURING PREGNANCY
  7. CALCIUM [Concomitant]
     Indication: DRUG EXPOSURE DURING PREGNANCY

REACTIONS (1)
  - APNOEA [None]
